FAERS Safety Report 4785669-4 (Version None)
Quarter: 2005Q4

REPORT INFORMATION
  Report Type: 
  Country: None (occurrence: None)
  Receive Date: 20051003
  Receipt Date: 20050927
  Transmission Date: 20060501
  Serious: Yes (Other)
  Sender: FDA-Public Use
  Company Number: US-JNJFOC-20050906510

PATIENT
  Age: 69 Year
  Sex: Female

DRUGS (2)
  1. LEVAQUIN [Suspect]
     Indication: URINARY TRACT INFECTION
     Route: 048
     Dates: start: 20050912, end: 20050921
  2. ZOCOR [Concomitant]
     Route: 048

REACTIONS (9)
  - AGEUSIA [None]
  - CONFUSIONAL STATE [None]
  - DEHYDRATION [None]
  - DIZZINESS [None]
  - DYSGEUSIA [None]
  - FATIGUE [None]
  - GENITAL PRURITUS FEMALE [None]
  - HYPOTENSION [None]
  - URINARY TRACT DISORDER [None]
